FAERS Safety Report 5012068-2 (Version None)
Quarter: 2006Q2

REPORT INFORMATION
  Report Type: 
  Country: None (occurrence: None)
  Receive Date: 20060526
  Receipt Date: 20060518
  Transmission Date: 20061013
  Serious: Yes (Hospitalization)
  Sender: FDA-Public Use
  Company Number: JP-JPN-A200601615

PATIENT
  Age: 66 Year
  Sex: Female

DRUGS (6)
  1. VALTREX [Suspect]
     Indication: HERPES ZOSTER
     Dosage: 500MG PER DAY
     Route: 048
     Dates: start: 20060516, end: 20060517
  2. ARASENA-A [Concomitant]
     Indication: HERPES ZOSTER
     Route: 065
     Dates: start: 20060513, end: 20060515
  3. NORVASC [Concomitant]
     Dosage: 2 PER DAY
     Route: 048
  4. ADALAT [Concomitant]
     Dosage: 3 PER DAY
     Route: 048
  5. BLOPRESS [Concomitant]
     Dosage: 4MG PER DAY
     Route: 048
  6. ALTAT [Concomitant]
     Route: 065

REACTIONS (7)
  - ABDOMINAL DISCOMFORT [None]
  - BLOOD PRESSURE INCREASED [None]
  - DISORIENTATION [None]
  - DIZZINESS [None]
  - DYSARTHRIA [None]
  - FEELING ABNORMAL [None]
  - HEADACHE [None]
